FAERS Safety Report 7313932-1 (Version None)
Quarter: 2011Q1

REPORT INFORMATION
  Report Type: 
  Country: None (occurrence: None)
  Receive Date: 20110225
  Receipt Date: 20110221
  Transmission Date: 20110831
  Serious: Yes (Hospitalization)
  Sender: FDA-Public Use
  Company Number: NL-MEDIMMUNE-MEDI-0011994

PATIENT
  Sex: Male
  Weight: 5.76 kg

DRUGS (5)
  1. DIGOXIN [Concomitant]
     Dates: start: 20100101
  2. FUROSEMIDE [Concomitant]
     Dates: start: 20100101
  3. ACETYLSALICYLATE CALCIUM [Concomitant]
     Dates: start: 20100101
  4. SPIRONOLACTONE [Concomitant]
     Dates: start: 20100101
  5. SYNAGIS [Suspect]
     Route: 030
     Dates: start: 20101028, end: 20101126

REACTIONS (1)
  - HYPOVENTILATION [None]
